FAERS Safety Report 6929733-X (Version None)
Quarter: 2010Q3

REPORT INFORMATION
  Report Type: 
  Country: None (occurrence: None)
  Receive Date: 20100818
  Receipt Date: 20100805
  Transmission Date: 20110219
  Serious: Yes (Other)
  Sender: FDA-Public Use
  Company Number: AU-SANOFI-AVENTIS-2010SA035794

PATIENT
  Age: 73 Year
  Sex: Female

DRUGS (7)
  1. ARAVA [Suspect]
     Dates: start: 20080605
  2. FISH OIL [Concomitant]
  3. GLUCOSAMINE [Concomitant]
  4. ATORVASTATIN [Concomitant]
  5. NIFEDIPINE [Concomitant]
  6. ATENOLOL [Concomitant]
  7. MONODUR [Concomitant]

REACTIONS (1)
  - RENAL FAILURE [None]
